FAERS Safety Report 25071024 (Version 1)
Quarter: 2025Q1

REPORT INFORMATION
  Report Type: Spontaneous
  Country: RU (occurrence: RU)
  Receive Date: 20250312
  Receipt Date: 20250312
  Transmission Date: 20250409
  Serious: Yes (Other)
  Sender: ROCHE
  Company Number: RU-ROCHE-10000222693

PATIENT
  Age: 63 Year

DRUGS (8)
  1. PERTUZUMAB [Suspect]
     Active Substance: PERTUZUMAB
     Indication: Invasive breast carcinoma
     Dosage: 840 MG LOADING DOSE.
     Route: 042
     Dates: end: 20240305
  2. PERTUZUMAB [Suspect]
     Active Substance: PERTUZUMAB
     Route: 042
  3. TRASTUZUMAB [Suspect]
     Active Substance: TRASTUZUMAB
     Indication: Invasive breast carcinoma
     Dosage: 8MG/KG LOADING DOSE
     Route: 042
     Dates: start: 20231101, end: 20240305
  4. TRASTUZUMAB [Suspect]
     Active Substance: TRASTUZUMAB
     Route: 065
     Dates: start: 201804, end: 201904
  5. TRASTUZUMAB [Suspect]
     Active Substance: TRASTUZUMAB
     Route: 042
     Dates: start: 202403, end: 202412
  6. TRASTUZUMAB [Suspect]
     Active Substance: TRASTUZUMAB
     Route: 065
     Dates: start: 201710, end: 201803
  7. ADO-TRASTUZUMAB EMTANSINE [Suspect]
     Active Substance: ADO-TRASTUZUMAB EMTANSINE
     Indication: Invasive breast carcinoma
     Route: 042
  8. DOCETAXEL [Suspect]
     Active Substance: DOCETAXEL
     Indication: Invasive breast carcinoma
     Route: 042

REACTIONS (26)
  - Metastases to central nervous system [Unknown]
  - Lung neoplasm [Unknown]
  - Lymphangiosis carcinomatosa [Unknown]
  - Atelectasis [Unknown]
  - Pleural effusion [Unknown]
  - Pericardial effusion [Unknown]
  - Disease progression [Unknown]
  - Hydrothorax [Unknown]
  - Metastases to liver [Unknown]
  - Kidney enlargement [Unknown]
  - Panniculitis [Unknown]
  - Bone lesion [Unknown]
  - Therapy partial responder [Unknown]
  - Liver injury [Unknown]
  - Hepatic steatosis [Unknown]
  - Mesenteric panniculitis [Unknown]
  - Metastases to bone [Unknown]
  - Pelvic fluid collection [Unknown]
  - Hydronephrosis [Unknown]
  - Nephrolithiasis [Unknown]
  - Ascites [Unknown]
  - Ureteric dilatation [Unknown]
  - Rib fracture [Unknown]
  - Procedural site reaction [Unknown]
  - Induration [Unknown]
  - Incision site swelling [Unknown]

NARRATIVE: CASE EVENT DATE: 20231001
